FAERS Safety Report 6674234-X (Version None)
Quarter: 2010Q2

REPORT INFORMATION
  Report Type: 
  Country: None (occurrence: None)
  Receive Date: 20100409
  Receipt Date: 20100331
  Transmission Date: 20101027
  Serious: Yes (Hospitalization)
  Sender: FDA-Public Use
  Company Number: JP-JNJFOC-20100302260

PATIENT
  Sex: Female
  Weight: 44 kg

DRUGS (18)
  1. REMICADE [Suspect]
     Indication: RHEUMATOID ARTHRITIS
     Route: 042
  2. REMICADE [Suspect]
     Route: 042
  3. REMICADE [Suspect]
     Route: 042
  4. REMICADE [Suspect]
     Route: 042
  5. REMICADE [Suspect]
     Dosage: PREVIOUSLY TREATED ON AN UNSPECIFIED DATE
     Route: 042
  6. REMICADE [Suspect]
     Route: 042
  7. RHEUMATREX [Concomitant]
     Indication: RHEUMATOID ARTHRITIS
     Route: 048
  8. ACTEMRA [Concomitant]
     Indication: RHEUMATOID ARTHRITIS
     Dosage: ROUTE: DR
  9. CALONAL [Concomitant]
     Indication: PREMEDICATION
     Route: 048
  10. RESTAMIN [Concomitant]
     Indication: PREMEDICATION
     Route: 048
  11. SOLU-CORTEF [Concomitant]
     Indication: PREMEDICATION
     Route: 042
  12. ALENDRONATE SODIUM [Concomitant]
     Indication: OSTEOPOROSIS
     Route: 048
  13. PREDNISOLONE [Concomitant]
     Indication: RHEUMATOID ARTHRITIS
     Route: 048
  14. CELECOX [Concomitant]
     Indication: RHEUMATOID ARTHRITIS
     Route: 048
  15. MUCODYNE [Concomitant]
     Indication: GASTRITIS
     Route: 048
  16. MUCOSTA [Concomitant]
     Indication: GASTRITIS
     Route: 048
  17. FOLIC ACID [Concomitant]
     Indication: PROPHYLAXIS
     Route: 048
  18. FAMOTIDINE [Concomitant]
     Indication: GASTRITIS
     Route: 048

REACTIONS (3)
  - BLOOD PRESSURE DECREASED [None]
  - INFUSION RELATED REACTION [None]
  - SHOCK [None]
